FAERS Safety Report 6057622-4 (Version None)
Quarter: 2009Q1

REPORT INFORMATION
  Report Type: 
  Country: None (occurrence: None)
  Receive Date: 20090129
  Receipt Date: 20080111
  Transmission Date: 20090719
  Serious: No
  Sender: FDA-Public Use
  Company Number: US-BAUSCH-2008BL000125

PATIENT
  Age: 86 Year
  Sex: Female

DRUGS (9)
  1. CARTEOLOL HYDROCHLORIDE [Suspect]
     Indication: OPEN ANGLE GLAUCOMA
     Route: 047
     Dates: start: 20070101, end: 20071231
  2. CARTEOLOL HYDROCHLORIDE [Suspect]
     Route: 047
     Dates: start: 20070101, end: 20071231
  3. CARTEOLOL HYDROCHLORIDE [Suspect]
     Route: 047
     Dates: start: 20070101, end: 20071231
  4. CARTEOLOL HYDROCHLORIDE [Suspect]
     Route: 047
     Dates: start: 20080101, end: 20080121
  5. TRUSOPT /GFR/ [Concomitant]
     Indication: OPEN ANGLE GLAUCOMA
     Route: 047
     Dates: start: 19960101
  6. XALATAN /SWE/ [Concomitant]
     Indication: OPEN ANGLE GLAUCOMA
     Route: 047
     Dates: start: 19980101
  7. BENICAR /USA/ [Concomitant]
     Indication: HYPERTENSION
     Route: 048
     Dates: start: 20050101
  8. VITAMIN D3 [Concomitant]
     Indication: HYPERPARATHYROIDISM
     Route: 048
     Dates: start: 20041001
  9. AZOR [Concomitant]
     Route: 048
     Dates: start: 20071201, end: 20071201

REACTIONS (18)
  - ANXIETY [None]
  - ARTHRALGIA [None]
  - ARTHRITIS [None]
  - BACK PAIN [None]
  - BODY TEMPERATURE DECREASED [None]
  - CONDITION AGGRAVATED [None]
  - EYE PAIN [None]
  - FATIGUE [None]
  - GLARE [None]
  - HYPERHIDROSIS [None]
  - INCREASED APPETITE [None]
  - NASAL CONGESTION [None]
  - PERIPHERAL COLDNESS [None]
  - POLLAKIURIA [None]
  - PRURITUS GENERALISED [None]
  - SLEEP DISORDER [None]
  - VISUAL ACUITY REDUCED [None]
  - WEIGHT INCREASED [None]
